FAERS Safety Report 5137906-4 (Version None)
Quarter: 2006Q4

REPORT INFORMATION
  Report Type: 
  Country: None (occurrence: None)
  Receive Date: 20061030
  Receipt Date: 20060202
  Transmission Date: 20070319
  Serious: No
  Sender: FDA-Public Use
  Company Number: US-GLAXOSMITHKLINE-A0592745A

PATIENT
  Sex: Female

DRUGS (1)
  1. ADVAIR HFA [Suspect]
     Indication: DRUG USE FOR UNKNOWN INDICATION
     Dosage: 1PUFF PER DAY
     Route: 055
     Dates: start: 20050812

REACTIONS (7)
  - PAIN [None]
  - PELVIC INFLAMMATORY DISEASE [None]
  - PERINEAL PAIN [None]
  - PHARMACEUTICAL PRODUCT COMPLAINT [None]
  - PROCTALGIA [None]
  - TENDERNESS [None]
  - VULVOVAGINAL DISCOMFORT [None]
